FAERS Safety Report 8205728-3 (Version None)
Quarter: 2012Q1

REPORT INFORMATION
  Report Type: 
  Country: None (occurrence: None)
  Receive Date: 20120309
  Receipt Date: 20120301
  Transmission Date: 20120608
  Serious: Yes (Hospitalization, Disabling)
  Sender: FDA-Public Use
  Company Number: 1216012

PATIENT
  Age: 45 Year
  Sex: Male

DRUGS (5)
  1. PREDNISONE TAB [Suspect]
     Indication: HYPERSENSITIVITY
     Dosage: ORAL
     Route: 048
  2. PREDNISONE TAB [Suspect]
     Indication: MYELOPATHY
     Dosage: ORAL
     Route: 048
  3. BENADRYL [Concomitant]
  4. EPINEPHRINE [Concomitant]
  5. METHYLPREDNISOLONE [Suspect]
     Indication: MYELOPATHY
     Dosage: 1 G GRAM(S), INTRAVENOUS
     Route: 042

REACTIONS (12)
  - URINARY RETENTION [None]
  - MUSCULAR WEAKNESS [None]
  - CONSTIPATION [None]
  - MYELOPATHY [None]
  - RADICULOPATHY [None]
  - GENITAL DISORDER MALE [None]
  - SEXUAL DYSFUNCTION [None]
  - HYPOAESTHESIA [None]
  - BACK PAIN [None]
  - SWELLING [None]
  - PARAPARESIS [None]
  - SPINAL CORD DISORDER [None]
